FAERS Safety Report 8710704 (Version 2)
Quarter: 2012Q4

REPORT INFORMATION
  Report Type: 
  Country: US (occurrence: US)
  Receive Date: 20120807
  Receipt Date: 20120928
  Transmission Date: 20130627
  Serious: No
  Sender: FDA-Public Use
  Company Number: US-PFIZER INC-2012189135

PATIENT
  Age: 58 Year
  Sex: Female

DRUGS (3)
  1. MEDROXYPROGESTERONE ACETATE [Suspect]
     Dosage: 10 mg, 1x/day
     Route: 048
  2. SYNTHROID [Concomitant]
     Indication: HYPOTHYROIDISM
     Dosage: 112 ug, 1x/day
  3. THYROID [Concomitant]
     Indication: HYPOTHYROIDISM
     Dosage: 32 mg, 1x/day

REACTIONS (2)
  - Product size issue [Unknown]
  - Hot flush [Unknown]
